FAERS Safety Report 11060601 (Version 2)
Quarter: 2015Q2

REPORT INFORMATION
  Report Type: Spontaneous
  Country: US (occurrence: US)
  Receive Date: 20150423
  Receipt Date: 20150507
  Transmission Date: 20150821
  Serious: Yes (Hospitalization, Other)
  Sender: FDA-Public Use
  Company Number: US-BAXTER-2015BAX018787

PATIENT
  Sex: Female

DRUGS (1)
  1. 0.9% SODIUM CHLORIDE INJECTION [Suspect]
     Active Substance: SODIUM CHLORIDE
     Indication: NEPHROLITHIASIS
     Route: 042
     Dates: start: 201503

REACTIONS (6)
  - Urinary tract infection [Recovering/Resolving]
  - Sepsis [Recovering/Resolving]
  - Peripheral swelling [Recovered/Resolved]
  - Fungal infection [Recovering/Resolving]
  - Bacterial infection [Recovering/Resolving]
  - Swelling [Recovered/Resolved]

NARRATIVE: CASE EVENT DATE: 201503
